FAERS Safety Report 8107886-8 (Version None)
Quarter: 2012Q1

REPORT INFORMATION
  Report Type: 
  Country: None (occurrence: None)
  Receive Date: 20120202
  Receipt Date: 20120120
  Transmission Date: 20120608
  Serious: Yes (Hospitalization)
  Sender: FDA-Public Use
  Company Number: JP-ROCHE-GNE319957

PATIENT
  Sex: Male
  Weight: 58.062 kg

DRUGS (18)
  1. OMALIZUMAB [Suspect]
     Route: 058
     Dates: start: 20091202
  2. OMALIZUMAB [Suspect]
     Route: 058
     Dates: start: 20091014
  3. OMALIZUMAB [Suspect]
     Dates: start: 20100223
  4. OMALIZUMAB [Suspect]
     Dates: start: 20100714
  5. SPIRIVA [Concomitant]
     Indication: PRODUCT USED FOR UNKNOWN INDICATION
     Dosage: UNK
     Dates: start: 20090721
  6. PRANLUKAST [Concomitant]
  7. OMALIZUMAB [Suspect]
     Indication: ASTHMA
     Dosage: 300 MG, Q2W
     Route: 058
     Dates: start: 20090728
  8. OMALIZUMAB [Suspect]
     Dates: start: 20100127
  9. OMALIZUMAB [Suspect]
     Route: 058
     Dates: start: 20090812
  10. OMALIZUMAB [Suspect]
     Route: 058
     Dates: start: 20090929
  11. OMALIZUMAB [Suspect]
     Route: 058
     Dates: start: 20091104
  12. OMALIZUMAB [Suspect]
     Route: 058
     Dates: start: 20091118
  13. OMALIZUMAB [Suspect]
     Dates: start: 20100616
  14. SALMETEROL XINAFOATE [Concomitant]
     Indication: PRODUCT USED FOR UNKNOWN INDICATION
  15. MEPTIN [Concomitant]
     Indication: PRODUCT USED FOR UNKNOWN INDICATION
  16. OMALIZUMAB [Suspect]
     Dates: start: 20100209
  17. OMALIZUMAB [Suspect]
     Route: 058
     Dates: start: 20090825
  18. OMALIZUMAB [Suspect]
     Route: 058
     Dates: start: 20090908

REACTIONS (2)
  - ASTHMA [None]
  - COLITIS ULCERATIVE [None]
